FAERS Safety Report 22526216 (Version 1)
Quarter: 2023Q2

REPORT INFORMATION
  Report Type: Spontaneous
  Country: US (occurrence: None)
  Receive Date: 20230605
  Receipt Date: 20230605
  Transmission Date: 20230722
  Serious: Yes (Hospitalization)
  Sender: FDA-Public Use
  Company Number: None

PATIENT
  Sex: Male

DRUGS (1)
  1. EGRIFTA SV [Suspect]
     Active Substance: TESAMORELIN ACETATE
     Dosage: OTHER QUANTITY : 1.4MG;?FREQUENCY : DAILY;?
     Route: 058

REACTIONS (2)
  - Dehydration [None]
  - Chest pain [None]
